FAERS Safety Report 9022793 (Version 1)
Quarter: 2013Q1

REPORT INFORMATION
  Report Type: Spontaneous
  Country: US (occurrence: US)
  Receive Date: 20130120
  Receipt Date: 20130120
  Transmission Date: 20140127
  Serious: No
  Sender: FDA-Public Use
  Company Number: US-ALLERGAN-1217418US

PATIENT
  Age: 55 Year
  Sex: Female

DRUGS (2)
  1. BOTOX COSMETIC [Suspect]
     Indication: SKIN WRINKLING
     Dosage: UNK UNK, SINGLE
     Route: 030
     Dates: start: 201211, end: 201211
  2. JUVEDERM [Suspect]
     Indication: SKIN WRINKLING
     Dosage: UNK
     Dates: start: 201211, end: 201211

REACTIONS (5)
  - Eye haemorrhage [Unknown]
  - Blister [Recovered/Resolved]
  - Injection site haemorrhage [Recovered/Resolved]
  - Injection site bruising [Recovering/Resolving]
  - Contusion [Recovering/Resolving]
